FAERS Safety Report 8268427-8 (Version None)
Quarter: 2012Q2

REPORT INFORMATION
  Report Type: 
  Country: None (occurrence: None)
  Receive Date: 20120409
  Receipt Date: 20120404
  Transmission Date: 20120825
  Serious: Yes (Life-Threatening)
  Sender: FDA-Public Use
  Company Number: GB-ASTRAZENECA-2012SE22313

PATIENT
  Age: 20 Year
  Sex: Female
  Weight: 50 kg

DRUGS (13)
  1. MEROPENEM [Suspect]
     Indication: CYSTIC FIBROSIS
     Route: 040
     Dates: start: 20111201, end: 20111201
  2. ALBUTEROL [Concomitant]
     Route: 055
  3. FLUTICASONE PROPIONATE/SALMETEROL [Concomitant]
     Route: 055
  4. AZITHROMYCIN [Concomitant]
     Route: 048
  5. TPN [Concomitant]
  6. MULTI-VITAMIN [Concomitant]
     Route: 048
  7. OMEPRAZOLE [Concomitant]
     Route: 048
  8. TOBI [Concomitant]
  9. VITAMIN E [Concomitant]
     Route: 048
  10. PULMOZYME [Concomitant]
     Route: 055
  11. DOMPERIDONE [Concomitant]
  12. SODIUM CHLORIDE [Concomitant]
     Route: 055
  13. CREON [Concomitant]
     Dosage: AS REQUIRED
     Route: 048

REACTIONS (1)
  - ANAPHYLACTIC REACTION [None]
